FAERS Safety Report 9803109 (Version 2)
Quarter: 2014Q1

REPORT INFORMATION
  Report Type: Spontaneous
  Country: US (occurrence: US)
  Receive Date: 20140108
  Receipt Date: 20140213
  Transmission Date: 20141002
  Serious: Yes (Hospitalization)
  Sender: FDA-Public Use
  Company Number: US-SA-2014SA001762

PATIENT
  Age: 63 Year
  Sex: Female
  Weight: 41 kg

DRUGS (2)
  1. HECTOROL [Suspect]
     Indication: PRODUCT USED FOR UNKNOWN INDICATION
     Route: 042
     Dates: start: 20131213, end: 20131213
  2. EPOGEN [Concomitant]
     Dosage: DOSE: 1000 UNITS
     Dates: start: 20131213

REACTIONS (5)
  - Loss of consciousness [Recovered/Resolved]
  - Blood pressure increased [Recovered/Resolved]
  - Bruxism [Recovered/Resolved]
  - Fall [Recovered/Resolved]
  - Clonus [Recovered/Resolved]
